FAERS Safety Report 19748039 (Version 2)
Quarter: 2021Q3

REPORT INFORMATION
  Report Type: Spontaneous
  Country: BG (occurrence: BG)
  Receive Date: 20210826
  Receipt Date: 20210902
  Transmission Date: 20211014
  Serious: Yes (Life-Threatening, Hospitalization, Other)
  Sender: FDA-Public Use
  Company Number: BG-AMGEN-BGRSP2021128754

PATIENT

DRUGS (1)
  1. PEGFILGRASTIM [Suspect]
     Active Substance: PEGFILGRASTIM
     Indication: PROPHYLAXIS
     Dosage: 6 MILLIGRAM, AFTER CHEMO (AT LEAST 24 TO 72 HOUR AFTER CHEMOTHERAPY)
     Route: 058

REACTIONS (3)
  - Infection [Unknown]
  - Neutropenia [Unknown]
  - Febrile neutropenia [Unknown]
